FAERS Safety Report 9723317 (Version 2)
Quarter: 2013Q4

REPORT INFORMATION
  Report Type: Spontaneous
  Country: US (occurrence: US)
  Receive Date: 20131202
  Receipt Date: 20131202
  Transmission Date: 20140711
  Serious: No
  Sender: FDA-Public Use
  Company Number: US-GLAXOSMITHKLINE-A0757882A

PATIENT
  Age: 61 Year
  Sex: Female

DRUGS (2)
  1. FLONASE [Suspect]
     Indication: RHINITIS ALLERGIC
     Route: 045
  2. FLONASE [Suspect]
     Indication: DYSPNOEA
     Route: 045
     Dates: start: 19930101

REACTIONS (6)
  - Dizziness [Unknown]
  - Headache [Unknown]
  - Palpitations [Unknown]
  - Influenza [Unknown]
  - Bronchitis [Unknown]
  - Chronic sinusitis [Unknown]
